FAERS Safety Report 10478920 (Version 1)
Quarter: 2014Q3

REPORT INFORMATION
  Report Type: Spontaneous
  Country: TW (occurrence: TW)
  Receive Date: 20140926
  Receipt Date: 20140926
  Transmission Date: 20150326
  Serious: Yes (Other)
  Sender: FDA-Public Use
  Company Number: TW-WATSON-2014-20785

PATIENT
  Age: 55 Year
  Sex: Female

DRUGS (1)
  1. TRIAMCINOLONE ACETONIDE (WATSON LABORATORIES) [Suspect]
     Active Substance: TRIAMCINOLONE ACETONIDE
     Indication: SCLERITIS
     Dosage: 40 MG/ML UNK,
     Route: 031

REACTIONS (2)
  - Optic atrophy [Unknown]
  - Drug administered at inappropriate site [Unknown]
